FAERS Safety Report 6034658-0 (Version None)
Quarter: 2009Q1

REPORT INFORMATION
  Report Type: 
  Country: None (occurrence: None)
  Receive Date: 20090109
  Receipt Date: 20090109
  Transmission Date: 20090719
  Serious: Yes (Disabling)
  Sender: FDA-Public Use
  Company Number: None

PATIENT
  Sex: Female

DRUGS (3)
  1. ZOMETA [Suspect]
     Indication: BREAST CANCER
     Dosage: 4 MG MONTHLY IV
     Route: 042
     Dates: start: 20011101, end: 20040601
  2. ZOLADEX [Concomitant]
  3. EPOGEN [Concomitant]

REACTIONS (4)
  - ERYTHEMA [None]
  - JAW DISORDER [None]
  - JAW FRACTURE [None]
  - MUCOSAL INFLAMMATION [None]
